FAERS Safety Report 21066235 (Version 1)
Quarter: 2022Q3

REPORT INFORMATION
  Report Type: Spontaneous
  Country: US (occurrence: US)
  Receive Date: 20220711
  Receipt Date: 20220711
  Transmission Date: 20221026
  Serious: No
  Sender: FDA-Public Use
  Company Number: US-INTRA-CELLULAR THERAPIES, INC.-2022ICT00546

PATIENT
  Sex: Female
  Weight: 81.224 kg

DRUGS (12)
  1. CAPLYTA [Suspect]
     Active Substance: LUMATEPERONE
     Indication: Bipolar II disorder
     Dosage: 42 MG, 1X/DAY
     Route: 048
     Dates: start: 20220311, end: 202204
  2. CAPLYTA [Suspect]
     Active Substance: LUMATEPERONE
     Indication: Bipolar disorder
     Dosage: 42 MG, EVERY 48 HOURS
     Dates: start: 20220422, end: 20220426
  3. CAPLYTA [Suspect]
     Active Substance: LUMATEPERONE
     Dosage: 42 MG, 1X/DAY
     Route: 048
     Dates: start: 20220429, end: 20220429
  4. CRESTOR [Concomitant]
     Active Substance: ROSUVASTATIN CALCIUM
  5. MYRBETRIQ [Concomitant]
     Active Substance: MIRABEGRON
  6. ADDERALL [Concomitant]
     Active Substance: AMPHETAMINE ASPARTATE\AMPHETAMINE SULFATE\DEXTROAMPHETAMINE SACCHARATE\DEXTROAMPHETAMINE SULFATE
  7. BIOTIN [Concomitant]
     Active Substance: BIOTIN
  8. UNSPECIFIED INGREDIENT [Concomitant]
     Active Substance: UNSPECIFIED INGREDIENT
  9. PROBIOTICS NOS [Concomitant]
     Active Substance: PROBIOTICS NOS
  10. VITAMIN D [Concomitant]
     Active Substance: VITAMIN D NOS
  11. LEVOMEFOLATE CALCIUM [Concomitant]
     Active Substance: LEVOMEFOLATE CALCIUM
  12. FISH OIL [Concomitant]
     Active Substance: FISH OIL

REACTIONS (15)
  - Migraine [Recovered/Resolved]
  - Autoscopy [Recovered/Resolved]
  - Nightmare [Recovered/Resolved]
  - Balance disorder [Recovered/Resolved]
  - Feeling hot [Recovered/Resolved]
  - Pyrexia [Recovered/Resolved]
  - Hypophagia [Not Recovered/Not Resolved]
  - Peripheral coldness [Recovered/Resolved]
  - Thirst [Not Recovered/Not Resolved]
  - Constipation [Recovered/Resolved]
  - Weight decreased [Unknown]
  - Anorgasmia [Not Recovered/Not Resolved]
  - Dissociative disorder [Recovered/Resolved]
  - Nausea [Recovered/Resolved]
  - Fall [Recovered/Resolved]

NARRATIVE: CASE EVENT DATE: 20220101
